FAERS Safety Report 7042192-4 (Version None)
Quarter: 2010Q4

REPORT INFORMATION
  Report Type: 
  Country: None (occurrence: None)
  Receive Date: 20101013
  Receipt Date: 20091117
  Transmission Date: 20110411
  Serious: No
  Sender: FDA-Public Use
  Company Number: US-ASTRAZENECA-2009SE27093

PATIENT
  Sex: Female

DRUGS (1)
  1. SYMBICORT [Suspect]
     Indication: WHEEZING
     Dosage: 640 MCG AC, 160/4.5 2 PUFFS BID
     Route: 055

REACTIONS (4)
  - APHONIA [None]
  - CANDIDIASIS [None]
  - DRUG INEFFECTIVE [None]
  - OROPHARYNGEAL PAIN [None]
